FAERS Safety Report 17833234 (Version 1)
Quarter: 2020Q2

REPORT INFORMATION
  Report Type: Spontaneous
  Country: ES (occurrence: ES)
  Receive Date: 20200528
  Receipt Date: 20200528
  Transmission Date: 20200714
  Serious: Yes (Other)
  Sender: FDA-Public Use
  Company Number: ES-TEVA-2020-ES-1242057

PATIENT
  Sex: Female

DRUGS (9)
  1. LAMOTRIGINE. [Suspect]
     Active Substance: LAMOTRIGINE
     Indication: CLUSTER HEADACHE
     Dosage: NO MORE THAN 50 MG DAILY
     Route: 048
  2. ZONISAMIDE. [Suspect]
     Active Substance: ZONISAMIDE
     Indication: CLUSTER HEADACHE
     Route: 048
  3. VERAPAMIL [Suspect]
     Active Substance: VERAPAMIL HYDROCHLORIDE
     Indication: CLUSTER HEADACHE
     Route: 048
  4. PREDNISONE. [Suspect]
     Active Substance: PREDNISONE
     Indication: CLUSTER HEADACHE
     Route: 048
  5. GABAPENTIN. [Concomitant]
     Active Substance: GABAPENTIN
     Indication: CLUSTER HEADACHE
     Route: 048
  6. LITHIUM. [Suspect]
     Active Substance: LITHIUM
     Indication: CLUSTER HEADACHE
     Dosage: FOR SHORT TIME
     Route: 048
  7. SODIUM VALPROATE [Suspect]
     Active Substance: VALPROATE SODIUM
     Indication: CLUSTER HEADACHE
     Route: 048
  8. INDOMETHACIN. [Suspect]
     Active Substance: INDOMETHACIN
     Indication: CLUSTER HEADACHE
     Route: 048
  9. TOPIRAMATE. [Suspect]
     Active Substance: TOPIRAMATE
     Indication: CLUSTER HEADACHE
     Route: 048

REACTIONS (9)
  - Dizziness [Unknown]
  - Weight decreased [Unknown]
  - Tachycardia [Unknown]
  - Vomiting [Unknown]
  - Depression [Unknown]
  - Tremor [Unknown]
  - Palpitations [Unknown]
  - Drug ineffective [Unknown]
  - Depressed mood [Unknown]
